FAERS Safety Report 13972063 (Version 1)
Quarter: 2017Q3

REPORT INFORMATION
  Report Type: Spontaneous
  Country: US (occurrence: None)
  Receive Date: 20170914
  Receipt Date: 20170914
  Transmission Date: 20171128
  Serious: No
  Sender: FDA-Public Use
  Company Number: None

PATIENT
  Age: 48 Year
  Sex: Female

DRUGS (1)
  1. STELARA [Suspect]
     Active Substance: USTEKINUMAB
     Indication: PSORIASIS
     Dosage: 45MG EVERY 3 MONTHS SUB-Q
     Route: 058
     Dates: start: 20161213, end: 20170701

REACTIONS (2)
  - Therapy non-responder [None]
  - Therapy cessation [None]

NARRATIVE: CASE EVENT DATE: 20170701
